FAERS Safety Report 8739083 (Version 2)
Quarter: 2013Q4

REPORT INFORMATION
  Report Type: Spontaneous
  Country: FR (occurrence: FR)
  Receive Date: 20120823
  Receipt Date: 20131101
  Transmission Date: 20140711
  Serious: Yes (Hospitalization)
  Sender: FDA-Public Use
  Company Number: FR-009507513-1208FRA006648

PATIENT
  Age: 38 Year
  Sex: Male

DRUGS (4)
  1. ISENTRESS [Suspect]
     Indication: HIV INFECTION
     Dosage: 400 MG, BID
     Route: 048
     Dates: start: 20120604
  2. KIVEXA [Suspect]
     Indication: HIV INFECTION
     Dosage: 1 DF, QD
     Route: 048
     Dates: start: 20120130
  3. FENOFIBRATE MICRO [Suspect]
     Indication: DYSLIPIDAEMIA
     Dosage: 300 MG, QD
     Route: 048
     Dates: start: 20120405
  4. ALTEIS [Suspect]
     Indication: HYPERTENSION
     Dosage: 40 MG, QD
     Dates: start: 201111

REACTIONS (1)
  - Arthritis [Recovered/Resolved]
